FAERS Safety Report 5463398-1 (Version None)
Quarter: 2007Q3

REPORT INFORMATION
  Report Type: 
  Country: None (occurrence: None)
  Receive Date: 20070920
  Receipt Date: 20070910
  Transmission Date: 20080115
  Serious: Yes (Hospitalization)
  Sender: FDA-Public Use
  Company Number: US-AMGEN-US242668

PATIENT
  Sex: Female

DRUGS (14)
  1. ETANERCEPT [Suspect]
     Indication: RHEUMATOID ARTHRITIS
     Route: 065
     Dates: start: 19970101
  2. METHOTREXATE [Concomitant]
     Route: 065
  3. TYLENOL (CAPLET) [Concomitant]
     Dates: start: 20070901
  4. NUTRITIONAL AGENTS AND VITAMINS [Concomitant]
  5. FLONASE [Concomitant]
     Route: 045
  6. ADVAIR DISKUS 100/50 [Concomitant]
  7. FOLIC ACID [Concomitant]
     Route: 048
  8. HYDROCHLOROTHIAZIDE [Concomitant]
     Route: 048
  9. MOTRIN [Concomitant]
     Route: 048
  10. ACTONEL [Concomitant]
     Route: 048
  11. SENOKOT [Concomitant]
     Route: 048
  12. DIOVAN [Concomitant]
     Route: 048
  13. VERAPAMIL [Concomitant]
     Route: 048
  14. ALBUTEROL [Concomitant]

REACTIONS (2)
  - ENCEPHALITIS [None]
  - HERPES ZOSTER [None]
